FAERS Safety Report 12280354 (Version 1)
Quarter: 2016Q2

REPORT INFORMATION
  Report Type: Spontaneous
  Country: AU (occurrence: AU)
  Receive Date: 20160419
  Receipt Date: 20160419
  Transmission Date: 20160815
  Serious: Yes (Other)
  Sender: FDA-Public Use
  Company Number: AU-PAR PHARMACEUTICAL COMPANIES-2016SCPR015354

PATIENT

DRUGS (1)
  1. DIAZEPAM. [Suspect]
     Active Substance: DIAZEPAM
     Dosage: UNK UNK, UNKNOWN
     Route: 065

REACTIONS (1)
  - Respiratory depression [Unknown]
